FAERS Safety Report 6376478-3 (Version None)
Quarter: 2009Q3

REPORT INFORMATION
  Report Type: 
  Country: None (occurrence: None)
  Receive Date: 20090925
  Receipt Date: 20090922
  Transmission Date: 20100115
  Serious: Yes (Death, Life-Threatening, Hospitalization, Other)
  Sender: FDA-Public Use
  Company Number: CN-ROXANE LABORATORIES, INC.-2009-RO-00972RO

PATIENT
  Age: 56 Year
  Sex: Male

DRUGS (12)
  1. METHOTREXATE [Suspect]
     Indication: PSORIASIS
  2. METHOTREXATE [Suspect]
     Indication: PSORIATIC ARTHROPATHY
  3. RAMIPRIL [Suspect]
  4. MEFENAMIC ACID [Suspect]
     Indication: ARTHRITIS
  5. CLOPIDOGREL [Suspect]
  6. PYRIDOXINE [Suspect]
  7. FAMOTIDINE [Suspect]
  8. METOPROLOL [Suspect]
  9. ISOSORBIDE DINITRATE [Suspect]
  10. ALFACALCIDOL [Suspect]
  11. PIPERACILLIN/TAZOBACTAM [Suspect]
     Indication: FEBRILE NEUTROPENIA
  12. CLOXACILLIN [Suspect]

REACTIONS (7)
  - ACUTE CORONARY SYNDROME [None]
  - FEBRILE NEUTROPENIA [None]
  - JAUNDICE [None]
  - LIVER FUNCTION TEST ABNORMAL [None]
  - PANCYTOPENIA [None]
  - PSORIATIC ARTHROPATHY [None]
  - SUPRAVENTRICULAR TACHYCARDIA [None]
